FAERS Safety Report 8296430-0 (Version None)
Quarter: 2012Q2

REPORT INFORMATION
  Report Type: 
  Country: None (occurrence: None)
  Receive Date: 20120418
  Receipt Date: 20120412
  Transmission Date: 20120825
  Serious: Yes (Hospitalization)
  Sender: FDA-Public Use
  Company Number: NL-MEDIMMUNE-MEDI-0014998

PATIENT
  Sex: Male
  Weight: 8.45 kg

DRUGS (3)
  1. SYNAGIS [Suspect]
     Indication: PREMATURE BABY
     Route: 030
     Dates: start: 20110902, end: 20120118
  2. SYNAGIS [Suspect]
     Route: 030
     Dates: start: 20120215, end: 20120411
  3. ALBUTEROL [Concomitant]

REACTIONS (7)
  - RHINORRHOEA [None]
  - RESPIRATORY SYNCYTIAL VIRUS TEST POSITIVE [None]
  - RALES [None]
  - WHEEZING [None]
  - RESPIRATORY TRACT INFECTION [None]
  - HYPOVENTILATION [None]
  - BREATH SOUNDS ABNORMAL [None]
